FAERS Safety Report 15941175 (Version 3)
Quarter: 2019Q2

REPORT INFORMATION
  Report Type: Spontaneous
  Country: US (occurrence: US)
  Receive Date: 20190208
  Receipt Date: 20190611
  Transmission Date: 20190711
  Serious: Yes (Other)
  Sender: FDA-Public Use
  Company Number: US-ASTRAZENECA-2019SE09855

PATIENT
  Age: 18547 Day
  Sex: Female
  Weight: 61.2 kg

DRUGS (10)
  1. PRILOSEC [Suspect]
     Active Substance: OMEPRAZOLE MAGNESIUM
     Route: 048
     Dates: start: 20100101
  2. PRILOSEC [Suspect]
     Active Substance: OMEPRAZOLE MAGNESIUM
     Route: 048
     Dates: start: 2015, end: 201711
  3. LIPITOR [Concomitant]
     Active Substance: ATORVASTATIN CALCIUM
  4. MORPHINE [Concomitant]
     Active Substance: MORPHINE
  5. MYLANTA [Concomitant]
     Active Substance: ALUMINUM HYDROXIDE\DIMETHICONE\MAGNESIUM HYDROXIDE
  6. VITAMIN D [Concomitant]
     Active Substance: VITAMIN D NOS
  7. CODEINE [Concomitant]
     Active Substance: CODEINE
  8. NEXIUM [Suspect]
     Active Substance: ESOMEPRAZOLE MAGNESIUM
     Route: 048
     Dates: start: 2015, end: 201711
  9. NEXIUM [Suspect]
     Active Substance: ESOMEPRAZOLE MAGNESIUM
     Route: 048
     Dates: start: 20100101
  10. PRILOSEC OTC [Suspect]
     Active Substance: OMEPRAZOLE MAGNESIUM
     Route: 048
     Dates: start: 2015, end: 201711

REACTIONS (7)
  - Rebound acid hypersecretion [Unknown]
  - Chronic kidney disease [Unknown]
  - Renal injury [Unknown]
  - Acute kidney injury [Unknown]
  - Renal failure [Unknown]
  - Dyspepsia [Unknown]
  - Tubulointerstitial nephritis [Unknown]

NARRATIVE: CASE EVENT DATE: 20160824
